FAERS Safety Report 9540240 (Version 1)
Quarter: 2013Q3

REPORT INFORMATION
  Report Type: Spontaneous
  Country: IT (occurrence: None)
  Receive Date: 20130917
  Receipt Date: 20130917
  Transmission Date: 20140515
  Serious: Yes (Hospitalization)
  Sender: FDA-Public Use
  Company Number: AUR-APL-2013-07624

PATIENT
  Age: 81 Year
  Sex: Male

DRUGS (8)
  1. AMOXICILLIN [Suspect]
     Indication: PYREXIA
     Route: 048
     Dates: start: 20130731, end: 20130814
  2. COUMADIN [Suspect]
     Indication: ATRIAL FIBRILLATION
     Route: 048
     Dates: start: 20100101, end: 20130814
  3. ENALAPRIL [Concomitant]
  4. BISOPROLOL HEMIFUMARATE (BISOPROLOL FUMARATE) [Concomitant]
  5. ALLOPURINOL [Concomitant]
  6. DUTASTERIDE (DUTASTERIDE) [Concomitant]
  7. SILODOSIN (SILODOSIN) [Concomitant]
  8. PANTOPRAZOLE (PANTOPRAZOLE) [Concomitant]

REACTIONS (3)
  - Pyrexia [None]
  - Drug interaction [None]
  - Hypocoagulable state [None]
